FAERS Safety Report 25344351 (Version 3)
Quarter: 2025Q3

REPORT INFORMATION
  Report Type: Report from Study
  Country: ZA (occurrence: ZA)
  Receive Date: 20250521
  Receipt Date: 20250826
  Transmission Date: 20251021
  Serious: Yes (Hospitalization, Other)
  Sender: ALEXION PHARMACEUTICALS
  Company Number: ZA-AstraZeneca-CH-00873358A

PATIENT
  Age: 74 Year
  Sex: Female
  Weight: 69 kg

DRUGS (4)
  1. DAPAGLIFLOZIN [Suspect]
     Active Substance: DAPAGLIFLOZIN
     Indication: Diabetes mellitus
  2. ESOMEPRAZOLE [Concomitant]
     Active Substance: ESOMEPRAZOLE
     Indication: Gastrooesophageal reflux disease
  3. ATORVASTATIN [Concomitant]
     Active Substance: ATORVASTATIN
     Indication: Blood cholesterol
  4. Equisin [Concomitant]
     Indication: Neoplasm malignant

REACTIONS (4)
  - Neoplasm malignant [Recovering/Resolving]
  - Blood glucose abnormal [Unknown]
  - Acquired gene mutation [Unknown]
  - Illness [Unknown]
